FAERS Safety Report 13824318 (Version 6)
Quarter: 2019Q3

REPORT INFORMATION
  Report Type: Report from Study
  Country: JP (occurrence: JP)
  Receive Date: 20170802
  Receipt Date: 20190729
  Transmission Date: 20191004
  Serious: Yes (Other)
  Sender: FDA-Public Use
  Company Number: JP-INCYTE CORPORATION-2016IN005591

PATIENT

DRUGS (15)
  1. JAKAVI [Suspect]
     Active Substance: RUXOLITINIB
     Dosage: 5 MG, QD
     Route: 048
     Dates: start: 20161007, end: 20161016
  2. JAKAVI [Suspect]
     Active Substance: RUXOLITINIB
     Dosage: 5 MG, QD
     Route: 048
     Dates: start: 20170321, end: 20170407
  3. JAKAVI [Suspect]
     Active Substance: RUXOLITINIB
     Dosage: 5 MG, QD
     Route: 048
     Dates: start: 20170522, end: 20170604
  4. JAKAVI [Suspect]
     Active Substance: RUXOLITINIB
     Dosage: 5 MG, QD
     Route: 048
     Dates: start: 20170904, end: 20170919
  5. JAKAVI [Suspect]
     Active Substance: RUXOLITINIB
     Indication: MYELOFIBROSIS
     Dosage: 5 MG, QD
     Route: 048
     Dates: start: 20160509, end: 20160627
  6. JAKAVI [Suspect]
     Active Substance: RUXOLITINIB
     Dosage: 5 MG, QD
     Route: 048
     Dates: start: 20160822, end: 20160831
  7. JAKAVI [Suspect]
     Active Substance: RUXOLITINIB
     Dosage: 5 MG, QD
     Route: 048
     Dates: start: 20161101, end: 20161110
  8. JAKAVI [Suspect]
     Active Substance: RUXOLITINIB
     Dosage: 5 MG, QD
     Route: 048
     Dates: start: 20170104, end: 20170117
  9. JAKAVI [Suspect]
     Active Substance: RUXOLITINIB
     Dosage: 5 MG, QD
     Route: 048
     Dates: start: 20161201, end: 20161210
  10. JAKAVI [Suspect]
     Active Substance: RUXOLITINIB
     Dosage: 5 MG, QD
     Route: 048
     Dates: start: 20170620, end: 20170711
  11. BAYASPIRIN [Concomitant]
     Active Substance: ASPIRIN
     Indication: PRODUCT USED FOR UNKNOWN INDICATION
     Dosage: UNK
     Route: 048
  12. JAKAVI [Suspect]
     Active Substance: RUXOLITINIB
     Dosage: 5 MG, QD
     Route: 048
     Dates: start: 20170801, end: 20170822
  13. JAKAVI [Suspect]
     Active Substance: RUXOLITINIB
     Dosage: 5MG, QD
     Route: 048
     Dates: start: 20190128
  14. JAKAVI [Suspect]
     Active Substance: RUXOLITINIB
     Dosage: 5 MG, QOD
     Route: 048
     Dates: start: 20171017, end: 20190127
  15. JAKAVI [Suspect]
     Active Substance: RUXOLITINIB
     Dosage: 5 MG, QD
     Route: 048
     Dates: start: 20170201, end: 20170218

REACTIONS (5)
  - Liver disorder [Unknown]
  - Anaemia [Not Recovered/Not Resolved]
  - Blood pressure increased [Unknown]
  - Renal failure [Not Recovered/Not Resolved]
  - Hypertension [Recovered/Resolved]

NARRATIVE: CASE EVENT DATE: 20160523
